FAERS Safety Report 4312345-4 (Version None)
Quarter: 2004Q1

REPORT INFORMATION
  Report Type: 
  Country: None (occurrence: None)
  Receive Date: 20040303
  Receipt Date: 20040219
  Transmission Date: 20041129
  Serious: Yes (Other)
  Sender: FDA-Public Use
  Company Number: 200397

PATIENT
  Age: 28 Year
  Sex: Female
  Weight: 95.2 kg

DRUGS (2)
  1. HERCEPTIN [Suspect]
     Indication: BREAST CANCER
     Dosage: 8 MG/KG, SINGLE, INTRAVENOUS; 6 MG/KG, 3/WEEK, INTRAVENOUS
     Route: 042
     Dates: start: 20021104, end: 20021104
  2. HERCEPTIN [Suspect]
     Indication: BREAST CANCER
     Dosage: 8 MG/KG, SINGLE, INTRAVENOUS; 6 MG/KG, 3/WEEK, INTRAVENOUS
     Route: 042
     Dates: start: 20020101, end: 20030326

REACTIONS (6)
  - ARTHRALGIA [None]
  - BLOOD GLUCOSE INCREASED [None]
  - COMPLICATIONS OF MATERNAL EXPOSURE TO THERAPEUTIC DRUGS [None]
  - DYSPNOEA EXERTIONAL [None]
  - OLIGOHYDRAMNIOS [None]
  - PREGNANCY [None]
